FAERS Safety Report 6393572-1 (Version None)
Quarter: 2009Q4

REPORT INFORMATION
  Report Type: 
  Country: None (occurrence: None)
  Receive Date: 20091008
  Receipt Date: 20090923
  Transmission Date: 20100525
  Serious: Yes (Death)
  Sender: FDA-Public Use
  Company Number: DE-GENENTECH-291728

PATIENT
  Sex: Female

DRUGS (4)
  1. RITUXIMAB [Suspect]
     Indication: B-CELL LYMPHOMA
     Dosage: 630 MG, Q4W
     Route: 042
     Dates: start: 20080331
  2. MITOXANTRONE [Suspect]
     Indication: B-CELL LYMPHOMA
     Dosage: 13 MG, Q4W
     Route: 042
     Dates: start: 20080401
  3. CHLORAMBUCIL [Suspect]
     Indication: B-CELL LYMPHOMA
     Dosage: 6 MG, TID
     Route: 048
     Dates: start: 20080401
  4. PREDNISOLONE [Suspect]
     Indication: B-CELL LYMPHOMA
     Dosage: 25 MG/M2, QD
     Route: 048
     Dates: start: 20080401

REACTIONS (1)
  - DEATH [None]
